FAERS Safety Report 9816162 (Version 1)
Quarter: 2014Q1

REPORT INFORMATION
  Report Type: Spontaneous
  Country: GB (occurrence: GB)
  Receive Date: 20140114
  Receipt Date: 20140114
  Transmission Date: 20141002
  Serious: Yes (Other)
  Sender: FDA-Public Use
  Company Number: GB-TEVA-455439ISR

PATIENT
  Sex: Male

DRUGS (1)
  1. TRAMADOL [Suspect]

REACTIONS (5)
  - Abdominal distension [Unknown]
  - Dyspepsia [Unknown]
  - Muscle spasms [Unknown]
  - Gait disturbance [Unknown]
  - Product substitution issue [Unknown]
